FAERS Safety Report 17935046 (Version 1)
Quarter: 2020Q2

REPORT INFORMATION
  Report Type: Spontaneous
  Country: US (occurrence: US)
  Receive Date: 20200623
  Receipt Date: 20200623
  Transmission Date: 20200714
  Serious: Yes (Hospitalization)
  Sender: FDA-Public Use
  Company Number: None

PATIENT
  Age: 57 Week
  Sex: Female
  Weight: 99 kg

DRUGS (2)
  1. SCENT THEORY - KEEP IT CLEAN - PURE CLEAN ANTI-BACTERIAL HAND SANITIZER [Suspect]
     Active Substance: ALCOHOL
     Indication: COVID-19 PROPHYLAXIS
     Dosage: ?          QUANTITY:1 DROP(S);?
     Route: 061
     Dates: start: 20200517, end: 20200623
  2. STEROID [Concomitant]
     Active Substance: UNSPECIFIED INGREDIENT

REACTIONS (2)
  - Malaise [None]
  - Hypoaesthesia [None]

NARRATIVE: CASE EVENT DATE: 20200621
